FAERS Safety Report 25935160 (Version 1)
Quarter: 2025Q4

REPORT INFORMATION
  Report Type: Spontaneous
  Country: US (occurrence: None)
  Receive Date: 20251016
  Receipt Date: 20251016
  Transmission Date: 20260117
  Serious: Yes (Hospitalization, Disabling, Other)
  Sender: FDA-CTU
  Company Number: None

PATIENT
  Age: 41 Year
  Sex: Male
  Weight: 72 kg

DRUGS (1)
  1. CIPROFLOXACIN [Suspect]
     Active Substance: CIPROFLOXACIN
     Indication: Prostatitis
     Dosage: OTHER QUANTITY : 1 TABLET(S);?FREQUENCY : TWICE A DAY;?
     Route: 048
     Dates: start: 20251001, end: 20251008

REACTIONS (8)
  - Gait disturbance [None]
  - Therapy cessation [None]
  - Tendon disorder [None]
  - Neuropathy peripheral [None]
  - Hypoaesthesia [None]
  - Muscle rupture [None]
  - Tendon pain [None]
  - Toxicity to various agents [None]

NARRATIVE: CASE EVENT DATE: 20251008
